FAERS Safety Report 4652085-5 (Version None)
Quarter: 2005Q2

REPORT INFORMATION
  Report Type: 
  Country: None (occurrence: None)
  Receive Date: 20050408
  Receipt Date: 20041221
  Transmission Date: 20051028
  Serious: No
  Sender: FDA-Public Use
  Company Number: 235157K04USA

PATIENT
  Age: 53 Year
  Sex: Female

DRUGS (2)
  1. REBIF [Suspect]
     Indication: MULTIPLE SCLEROSIS
     Dosage: 44 MCG, 3 IN 1 WEEKS
     Dates: start: 20040401
  2. PRAVACHOL [Suspect]
     Dates: end: 20041001

REACTIONS (2)
  - HEPATIC ENZYME INCREASED [None]
  - HEPATIC STEATOSIS [None]
